FAERS Safety Report 17303563 (Version 2)
Quarter: 2020Q1

REPORT INFORMATION
  Report Type: Report from Study
  Country: US (occurrence: US)
  Receive Date: 20200122
  Receipt Date: 20200129
  Transmission Date: 20200409
  Serious: Yes (Death)
  Sender: FDA-Public Use
  Company Number: US-ACTELION-A-NJ2018-174297

PATIENT
  Age: 90 Year
  Sex: Female
  Weight: 45.35 kg

DRUGS (4)
  1. COUMADIN [Concomitant]
     Active Substance: WARFARIN SODIUM
  2. TRACLEER [Suspect]
     Active Substance: BOSENTAN
     Indication: PULMONARY ARTERIAL HYPERTENSION
     Dosage: 125 MG, BID
     Route: 048
  3. REVATIO [Concomitant]
     Active Substance: SILDENAFIL CITRATE
  4. DILTIAZEM. [Concomitant]
     Active Substance: DILTIAZEM

REACTIONS (6)
  - Contusion [Unknown]
  - Fluid retention [Unknown]
  - Influenza [Unknown]
  - Rectal haemorrhage [Unknown]
  - Cardiac failure [Unknown]
  - Death [Fatal]

NARRATIVE: CASE EVENT DATE: 20191111
